FAERS Safety Report 10399627 (Version 2)
Quarter: 2014Q3

REPORT INFORMATION
  Report Type: Spontaneous
  Country: PL (occurrence: PL)
  Receive Date: 20140821
  Receipt Date: 20140828
  Transmission Date: 20150326
  Serious: Yes (Death, Hospitalization)
  Sender: FDA-Public Use
  Company Number: PHHY2014PL102369

PATIENT
  Age: 41 Year
  Sex: Female

DRUGS (10)
  1. TREPROSTINIL [Suspect]
     Active Substance: TREPROSTINIL
     Dosage: 5 MG/ML, UNK
  2. ACENOCOUMAROL [Suspect]
     Active Substance: ACENOCOUMAROL
     Dosage: 4 MG
  3. IPP [Suspect]
     Active Substance: PANTOPRAZOLE SODIUM
     Dosage: 1 DF, QD
     Route: 048
  4. SPIRONOL [Suspect]
     Active Substance: SPIRONOLACTONE
     Dosage: 1 DF, QD
  5. FUROSEMIDUM//FUROSEMIDE [Suspect]
     Active Substance: FUROSEMIDE
     Dosage: 4 DF, TID
  6. VOLIBRIS [Suspect]
     Active Substance: AMBRISENTAN
     Dosage: 1 DF, BID
  7. MILURIT [Suspect]
     Active Substance: ALLOPURINOL
     Dosage: 1 DF, QD
  8. SILDENAFIL [Suspect]
     Active Substance: SILDENAFIL
     Dosage: 1 DF, TID
  9. HYGROTON [Suspect]
     Active Substance: CHLORTHALIDONE
     Dosage: 0.5 DF, QD
  10. KALIUM [Suspect]
     Active Substance: POTASSIUM CHLORIDE
     Dosage: 1 DF, BID

REACTIONS (9)
  - Ascites [Unknown]
  - Diarrhoea [Unknown]
  - Cardiomegaly [Unknown]
  - Dyspnoea [Unknown]
  - Acute respiratory failure [Unknown]
  - Cardiac failure [Unknown]
  - Vomiting [Unknown]
  - Cardiac arrest [Fatal]
  - Hypotonia [Unknown]

NARRATIVE: CASE EVENT DATE: 201210
